FAERS Safety Report 6865456-3 (Version None)
Quarter: 2010Q3

REPORT INFORMATION
  Report Type: 
  Country: None (occurrence: None)
  Receive Date: 20100721
  Receipt Date: 20080630
  Transmission Date: 20110219
  Serious: No
  Sender: FDA-Public Use
  Company Number: US-PFIZER INC-2008036130

PATIENT
  Sex: Female
  Weight: 65.8 kg

DRUGS (3)
  1. CHANTIX [Suspect]
     Indication: SMOKING CESSATION THERAPY
     Dates: start: 20080405
  2. BUSPAR [Suspect]
     Indication: ANXIETY
  3. BUSPAR [Suspect]
     Indication: SMOKING CESSATION THERAPY

REACTIONS (3)
  - CONSTIPATION [None]
  - FLATULENCE [None]
  - INCORRECT DOSE ADMINISTERED [None]
